FAERS Safety Report 4426108-2 (Version None)
Quarter: 2004Q3

REPORT INFORMATION
  Report Type: 
  Country: None (occurrence: None)
  Receive Date: 20040811
  Receipt Date: 20040723
  Transmission Date: 20050211
  Serious: Yes (Other)
  Sender: FDA-Public Use
  Company Number: USA040773540

PATIENT
  Age: 82 Year
  Sex: Female

DRUGS (8)
  1. FORTEO [Suspect]
     Indication: OSTEOPOROSIS
     Dates: start: 20030601
  2. CALCIUM WITH VITAMIN D [Concomitant]
  3. ZOLOFT [Concomitant]
  4. PERSANTINE-75 [Concomitant]
  5. TRIMETHOPRIM [Concomitant]
  6. DITROPAN [Concomitant]
  7. KLONOPIN [Concomitant]
  8. TRAZODONE HCL [Concomitant]

REACTIONS (13)
  - BALANCE DISORDER [None]
  - GAIT DISTURBANCE [None]
  - HYPERSOMNIA [None]
  - INSOMNIA [None]
  - MARKEDLY REDUCED DIETARY INTAKE [None]
  - NERVE INJURY [None]
  - PHARMACEUTICAL PRODUCT COMPLAINT [None]
  - RETINAL SCAR [None]
  - RETINAL TEAR [None]
  - TOOTH EXTRACTION [None]
  - VISUAL ACUITY REDUCED [None]
  - VISUAL FIELD DEFECT [None]
  - WEIGHT DECREASED [None]
